FAERS Safety Report 20704398 (Version 1)
Quarter: 2022Q2

REPORT INFORMATION
  Report Type: Spontaneous
  Country: US (occurrence: None)
  Receive Date: 20220412
  Receipt Date: 20220412
  Transmission Date: 20220721
  Serious: Yes (Hospitalization)
  Sender: FDA-Public Use
  Company Number: None

PATIENT
  Sex: Female

DRUGS (4)
  1. NUCALA [Suspect]
     Active Substance: MEPOLIZUMAB
     Indication: Organising pneumonia
     Dosage: OTHER QUANTITY : 1 PEN;?FREQUENCY : MONTHLY;?
     Route: 058
     Dates: start: 20200326
  2. NUCALA [Suspect]
     Active Substance: MEPOLIZUMAB
     Indication: Pulmonary arterial hypertension
  3. NUCALA [Suspect]
     Active Substance: MEPOLIZUMAB
     Indication: Complement deficiency disease
  4. NUCALA [Suspect]
     Active Substance: MEPOLIZUMAB
     Indication: Asthma

REACTIONS (1)
  - Hospitalisation [None]
